FAERS Safety Report 4780340-7 (Version None)
Quarter: 2005Q3

REPORT INFORMATION
  Report Type: 
  Country: None (occurrence: None)
  Receive Date: 20050927
  Receipt Date: 20050921
  Transmission Date: 20060218
  Serious: Yes (Death)
  Sender: FDA-Public Use
  Company Number: 2005SE05356

PATIENT
  Age: 26566 Day
  Sex: Male

DRUGS (5)
  1. SEROQUEL [Suspect]
     Indication: CONFUSIONAL STATE
     Dosage: 1+1+1/4 TABLET/DAY
     Route: 048
     Dates: start: 20050520, end: 20050916
  2. SERENASE [Suspect]
     Indication: CONFUSIONAL STATE
     Dates: start: 20050810, end: 20050914
  3. EBIXA [Concomitant]
     Indication: DEMENTIA
     Route: 048
     Dates: start: 20050905, end: 20050916
  4. LORAZEPAM [Concomitant]
     Indication: ANXIETY
     Dosage: 1 MG 3 TIMES PER DAY
     Route: 048
     Dates: start: 20050622, end: 20050916
  5. DEPRAKINE [Concomitant]
     Indication: ABNORMAL BEHAVIOUR
     Route: 048
     Dates: start: 20050622, end: 20050916

REACTIONS (1)
  - NEUROLEPTIC MALIGNANT SYNDROME [None]
